FAERS Safety Report 20856029 (Version 2)
Quarter: 2024Q3

REPORT INFORMATION
  Report Type: Spontaneous
  Country: CA (occurrence: CA)
  Receive Date: 20220520
  Receipt Date: 20240820
  Transmission Date: 20241017
  Serious: Yes (Life-Threatening, Hospitalization, Other)
  Sender: GILEAD
  Company Number: CA-GILEAD-2022-0582362

PATIENT
  Age: 55 Year
  Sex: Female
  Weight: 74 kg

DRUGS (8)
  1. VEKLURY [Suspect]
     Active Substance: REMDESIVIR
     Indication: COVID-19
     Dosage: 100 MG, UNK
     Route: 042
  2. VEKLURY [Suspect]
     Active Substance: REMDESIVIR
     Indication: COVID-19 pneumonia
  3. AMIODARONE [Suspect]
     Active Substance: AMIODARONE
     Indication: Ventricular tachycardia
     Dosage: UNK
     Route: 042
  4. ACYCLOVIR [Concomitant]
     Active Substance: ACYCLOVIR
     Indication: Herpes zoster
  5. BENDAMUSTINE [Concomitant]
     Active Substance: BENDAMUSTINE
  6. RITUXIMAB [Concomitant]
     Active Substance: RITUXIMAB
     Indication: Follicular lymphoma stage III
  7. DEXAMETHASONE [Concomitant]
     Active Substance: DEXAMETHASONE
     Indication: COVID-19 pneumonia
  8. CEFTRIAXONE [Concomitant]
     Active Substance: CEFTRIAXONE\CEFTRIAXONE SODIUM
     Route: 030

REACTIONS (8)
  - Electrocardiogram QT prolonged [Recovered/Resolved]
  - Torsade de pointes [Recovered/Resolved]
  - Cardiac arrest [Recovered/Resolved]
  - Bradycardia [Recovered/Resolved]
  - Extrasystoles [Recovered/Resolved]
  - Loss of consciousness [Recovered/Resolved]
  - SARS-CoV-2 test positive [Recovered/Resolved]
  - Ventricular extrasystoles [Recovered/Resolved]
